FAERS Safety Report 18747492 (Version 8)
Quarter: 2021Q2

REPORT INFORMATION
  Report Type: Report from Study
  Country: BR (occurrence: BR)
  Receive Date: 20210115
  Receipt Date: 20210630
  Transmission Date: 20210717
  Serious: Yes (Life-Threatening, Other)
  Sender: FDA-Public Use
  Company Number: PHHY2019BR195222

PATIENT
  Age: 64 Year
  Sex: Female

DRUGS (7)
  1. XOLAIR [Suspect]
     Active Substance: OMALIZUMAB
     Dosage: UNK (STARTED 1 YEAR AND 8 MONTHS AGO)
     Route: 065
  2. SEEBRI [Suspect]
     Active Substance: GLYCOPYRROLATE
     Dosage: 1 PUFF, AT 3 PM (5 YEARS AGO)
     Route: 055
  3. XOLAIR [Suspect]
     Active Substance: OMALIZUMAB
     Dosage: 150 MG, EVERY 15 DAYS (4 AMPOULES)
     Route: 058
     Dates: start: 2019
  4. XOLAIR [Suspect]
     Active Substance: OMALIZUMAB
     Dosage: UNK
     Route: 065
     Dates: end: 20201217
  5. XOLAIR [Suspect]
     Active Substance: OMALIZUMAB
     Indication: ASTHMA
     Dosage: 150 MG, BIW (4 AMPOULES)
     Route: 065
     Dates: start: 20190410
  6. XOLAIR [Suspect]
     Active Substance: OMALIZUMAB
     Dosage: UNK
     Route: 065
  7. SEEBRI [Suspect]
     Active Substance: GLYCOPYRROLATE
     Indication: ASTHMA
     Dosage: STARTED 6 YEARS AGO
     Route: 065

REACTIONS (24)
  - Near death experience [Recovered/Resolved]
  - Malaise [Unknown]
  - Asthma [Unknown]
  - Gait disturbance [Unknown]
  - Drug ineffective [Unknown]
  - Intestinal haemorrhage [Recovered/Resolved]
  - Hypersensitivity [Not Recovered/Not Resolved]
  - Dyspnoea [Recovered/Resolved]
  - Intestinal polyp [Recovered/Resolved]
  - Fatigue [Unknown]
  - Dyspnoea [Recovering/Resolving]
  - Total lung capacity decreased [Unknown]
  - Feeling abnormal [Recovered/Resolved]
  - Chills [Not Recovered/Not Resolved]
  - Panic disorder [Not Recovered/Not Resolved]
  - Near death experience [Unknown]
  - Enteritis infectious [Recovered/Resolved]
  - Asthmatic crisis [Not Recovered/Not Resolved]
  - Bronchitis [Unknown]
  - Fear [Unknown]
  - Nasopharyngitis [Not Recovered/Not Resolved]
  - Gait disturbance [Recovered/Resolved]
  - Condition aggravated [Unknown]
  - Dyspnoea [Recovered/Resolved]

NARRATIVE: CASE EVENT DATE: 2019
